FAERS Safety Report 5483196-2 (Version None)
Quarter: 2007Q4

REPORT INFORMATION
  Report Type: 
  Country: None (occurrence: None)
  Receive Date: 20071009
  Receipt Date: 20070925
  Transmission Date: 20080405
  Serious: Yes (Other)
  Sender: FDA-Public Use
  Company Number: 2007SP019744

PATIENT
  Age: 1 Day
  Sex: Male

DRUGS (2)
  1. PEG-INTRON [Suspect]
     Indication: DRUG USE FOR UNKNOWN INDICATION
     Dates: start: 20060308, end: 20061028
  2. REBETOL [Suspect]
     Dates: start: 20060308, end: 20061028

REACTIONS (5)
  - CARDIAC MURMUR [None]
  - DRUG EXPOSURE DURING PREGNANCY [None]
  - NEONATAL DISORDER [None]
  - PREMATURE BABY [None]
  - TRANSMISSION OF DRUG VIA SEMEN [None]
